FAERS Safety Report 5281778-4 (Version None)
Quarter: 2007Q1

REPORT INFORMATION
  Report Type: 
  Country: None (occurrence: None)
  Receive Date: 20070330
  Receipt Date: 20070326
  Transmission Date: 20070707
  Serious: Yes (Hospitalization)
  Sender: FDA-Public Use
  Company Number: IT-GLAXOSMITHKLINE-B0464208A

PATIENT
  Age: 50 Year
  Sex: Female

DRUGS (1)
  1. AUGMENTIN '125' [Suspect]
     Indication: INFECTION PROPHYLAXIS
     Dosage: 1000MG PER DAY
     Route: 048
     Dates: start: 20070316, end: 20070316

REACTIONS (2)
  - EPIGLOTTITIS [None]
  - URTICARIA GENERALISED [None]
